FAERS Safety Report 8200104-1 (Version None)
Quarter: 2012Q1

REPORT INFORMATION
  Report Type: 
  Country: None (occurrence: None)
  Receive Date: 20120306
  Receipt Date: 20120224
  Transmission Date: 20120608
  Serious: Yes (Other)
  Sender: FDA-Public Use
  Company Number: 2012SP010738

PATIENT
  Age: 28 Year
  Sex: Female
  Weight: 103.4201 kg

DRUGS (1)
  1. SAPHRIS [Suspect]
     Indication: BIPOLAR DISORDER
     Dosage: 10 MG;SL
     Route: 060
     Dates: start: 20111201

REACTIONS (3)
  - DYSPHAGIA [None]
  - MUSCLE SPASMS [None]
  - INSOMNIA [None]
